FAERS Safety Report 25946410 (Version 1)
Quarter: 2025Q4

REPORT INFORMATION
  Report Type: Report from Study
  Country: EU (occurrence: EU)
  Receive Date: 20251022
  Receipt Date: 20251022
  Transmission Date: 20260118
  Serious: Yes (Hospitalization)
  Sender: ROCHE
  Company Number: EU-ROCHE-10000413312

PATIENT
  Sex: Male

DRUGS (1)
  1. TOCILIZUMAB [Suspect]
     Active Substance: TOCILIZUMAB
     Indication: Spinal muscular atrophy
     Dosage: FORM STRENGTH: 162 MG/0.9 ML
     Route: 058

REACTIONS (2)
  - Infection [Unknown]
  - Off label use [Unknown]
